FAERS Safety Report 4344230-6 (Version None)
Quarter: 2004Q2

REPORT INFORMATION
  Report Type: 
  Country: None (occurrence: None)
  Receive Date: 20040419
  Receipt Date: 20040406
  Transmission Date: 20050107
  Serious: Yes (Death)
  Sender: FDA-Public Use
  Company Number: 02100-JPN-04-0057

PATIENT
  Age: 81 Year
  Sex: Female

DRUGS (5)
  1. CILOSTAZOL [Suspect]
     Indication: CEREBRAL INFARCTION
     Dosage: 200 MG
     Route: 048
     Dates: start: 20031211, end: 20040305
  2. ACETYLSALICYLIC ACID SRT [Concomitant]
  3. CHINESE HERBAL MEDICINE [Concomitant]
  4. ACETAMINOPHEN [Concomitant]
  5. ZOLPIDEM TARTRATE [Concomitant]

REACTIONS (3)
  - BLOOD PRESSURE INCREASED [None]
  - CEREBRAL HAEMORRHAGE [None]
  - INTERNATIONAL NORMALISED RATIO DECREASED [None]
